FAERS Safety Report 23028433 (Version 1)
Quarter: 2023Q4

REPORT INFORMATION
  Report Type: Spontaneous
  Country: FR (occurrence: FR)
  Receive Date: 20231004
  Receipt Date: 20231004
  Transmission Date: 20240110
  Serious: Yes (Other)
  Sender: FDA-Public Use
  Company Number: None

PATIENT
  Age: 75 Year
  Sex: Female
  Weight: 64 kg

DRUGS (3)
  1. DILTIAZEM [Interacting]
     Active Substance: DILTIAZEM
     Indication: Hypertension
     Dosage: 120 MILLIGRAM, QD SUSTAINED RELEASE
     Route: 048
     Dates: start: 2022
  2. PACLITAXEL [Interacting]
     Active Substance: PACLITAXEL
     Indication: Ovarian cancer metastatic
     Dosage: 105 MILLIGRAM D1+D8 +D15
     Route: 042
     Dates: start: 20230808
  3. CARBOPLATIN [Interacting]
     Active Substance: CARBOPLATIN
     Indication: Ovarian cancer metastatic
     Dosage: 144 MILLIGRAM(D1 D8 D15)
     Route: 042
     Dates: start: 20230808

REACTIONS (4)
  - Neuropathy peripheral [Recovering/Resolving]
  - Mucosal inflammation [Recovering/Resolving]
  - Diarrhoea [Recovering/Resolving]
  - Drug interaction [Unknown]

NARRATIVE: CASE EVENT DATE: 20230908
